FAERS Safety Report 18472927 (Version 1)
Quarter: 2020Q4

REPORT INFORMATION
  Report Type: Spontaneous
  Country: CA (occurrence: CA)
  Receive Date: 20201106
  Receipt Date: 20201106
  Transmission Date: 20210114
  Serious: Yes (Other)
  Sender: FDA-Public Use
  Company Number: CA-GLAXOSMITHKLINE-CA2020GSK220817

PATIENT
  Sex: Male

DRUGS (2)
  1. AVANDIA [Suspect]
     Active Substance: ROSIGLITAZONE MALEATE
     Indication: DIABETES MELLITUS
     Dosage: UNK, QD
     Route: 048
     Dates: start: 20040304, end: 20070826
  2. AVANDIA [Suspect]
     Active Substance: ROSIGLITAZONE MALEATE
     Dosage: 4 MG, QD
     Route: 048
     Dates: start: 20040304, end: 20070111

REACTIONS (8)
  - Tachycardia [Unknown]
  - Cardiac disorder [Unknown]
  - Cardiac arrest [Unknown]
  - Arteriosclerosis coronary artery [Unknown]
  - Coronary artery bypass [Unknown]
  - Bundle branch block left [Unknown]
  - Coronary artery disease [Unknown]
  - Angioplasty [Unknown]
